FAERS Safety Report 6128829-2 (Version None)
Quarter: 2009Q1

REPORT INFORMATION
  Report Type: 
  Country: None (occurrence: None)
  Receive Date: 20090320
  Receipt Date: 20090309
  Transmission Date: 20090719
  Serious: Yes (Hospitalization, Other)
  Sender: FDA-Public Use
  Company Number: 2009AP001028

PATIENT
  Age: 51 Year
  Sex: Female

DRUGS (11)
  1. CEFUROXIME AXETIL [Suspect]
     Indication: PROPHYLAXIS
     Dosage: 4.5 GM
  2. AMLODIPINE BESYLATE [Concomitant]
  3. ETACRYNIC ACID [Concomitant]
  4. OXYCODONE HCL [Concomitant]
  5. PREDNISONE [Concomitant]
  6. HYDROXYCHOLROQUINE [Concomitant]
  7. PANTOPRAZOLE SODIUM [Concomitant]
  8. ATENOLOL [Concomitant]
  9. DILTIAZEM [Concomitant]
  10. SPIRONOLACTONE [Concomitant]
  11. PREDNISONE [Concomitant]

REACTIONS (10)
  - ANTINUCLEAR ANTIBODY POSITIVE [None]
  - DOUBLE STRANDED DNA ANTIBODY [None]
  - GLOMERULONEPHRITIS MEMBRANOUS [None]
  - HAEMOGLOBIN DECREASED [None]
  - KIDNEY FIBROSIS [None]
  - RED BLOOD CELL SEDIMENTATION RATE INCREASED [None]
  - RENAL FAILURE ACUTE [None]
  - RENAL TUBULAR ATROPHY [None]
  - TUBULOINTERSTITIAL NEPHRITIS [None]
  - TYPE III IMMUNE COMPLEX MEDIATED REACTION [None]
